FAERS Safety Report 10224681 (Version 1)
Quarter: 2014Q2

REPORT INFORMATION
  Report Type: Spontaneous
  Country: DE (occurrence: DE)
  Receive Date: 20140609
  Receipt Date: 20140609
  Transmission Date: 20141212
  Serious: Yes (Other)
  Sender: FDA-Public Use
  Company Number: DE-MYLANLABS-2014S1012546

PATIENT
  Age: 67 Year
  Sex: Male
  Weight: 93 kg

DRUGS (6)
  1. ATORVASTATIN [Suspect]
     Indication: PROPHYLAXIS
     Route: 048
     Dates: start: 201212, end: 201404
  2. ASS [Concomitant]
     Indication: PLATELET AGGREGATION INHIBITION
     Route: 048
     Dates: start: 2008
  3. RAMIPRIL [Concomitant]
     Indication: HYPERTENSION
     Route: 048
     Dates: start: 2008
  4. HCT [Concomitant]
     Indication: HYPERTENSION
     Route: 048
     Dates: start: 2008
  5. BISOPROLOL [Concomitant]
     Indication: HYPERTENSION
     Route: 048
     Dates: start: 2008
  6. ISDN [Concomitant]
     Indication: ANGINA PECTORIS
     Route: 048
     Dates: start: 2012

REACTIONS (2)
  - Limb discomfort [Recovered/Resolved]
  - Gait disturbance [Recovered/Resolved]
